FAERS Safety Report 13865850 (Version 1)
Quarter: 2017Q3

REPORT INFORMATION
  Report Type: Spontaneous
  Country: US (occurrence: US)
  Receive Date: 20170814
  Receipt Date: 20170814
  Transmission Date: 20171127
  Serious: No
  Sender: FDA-Public Use
  Company Number: US-ROCHE-669656

PATIENT
  Age: 10 Year
  Sex: Female

DRUGS (1)
  1. TAMIFLU [Suspect]
     Active Substance: OSELTAMIVIR PHOSPHATE
     Indication: H1N1 INFLUENZA
     Route: 048

REACTIONS (5)
  - Pyrexia [Unknown]
  - Lymphadenopathy [Unknown]
  - Decreased immune responsiveness [Not Recovered/Not Resolved]
  - Headache [Unknown]
  - Oropharyngeal pain [Unknown]
